FAERS Safety Report 9903344 (Version 1)
Quarter: 2014Q1

REPORT INFORMATION
  Report Type: Spontaneous
  Country: US (occurrence: US)
  Receive Date: 20140217
  Receipt Date: 20140217
  Transmission Date: 20141002
  Serious: No
  Sender: FDA-Public Use
  Company Number: US-GILEAD-2011-0046257

PATIENT
  Sex: Female

DRUGS (5)
  1. LETAIRIS [Suspect]
     Indication: PRODUCT USED FOR UNKNOWN INDICATION
     Dosage: 5 UNK, UNK
     Route: 048
     Dates: start: 20110916
  2. LETAIRIS [Suspect]
     Dosage: 10 MG, UNK
     Route: 048
     Dates: start: 20110714, end: 20110806
  3. LETAIRIS [Suspect]
     Dosage: 5 MG, UNK
     Route: 048
     Dates: end: 20110627
  4. REVATIO [Suspect]
  5. NIFEDIPINE [Suspect]

REACTIONS (2)
  - Cardiac operation [Unknown]
  - Gravitational oedema [Unknown]
